FAERS Safety Report 8076220-4 (Version None)
Quarter: 2012Q1

REPORT INFORMATION
  Report Type: 
  Country: None (occurrence: None)
  Receive Date: 20120127
  Receipt Date: 20120119
  Transmission Date: 20120608
  Serious: Yes (Hospitalization)
  Sender: FDA-Public Use
  Company Number: US-PFIZER INC-2012016147

PATIENT
  Sex: Female

DRUGS (4)
  1. COZAAR [Concomitant]
     Indication: HYPERTENSION
     Dosage: UNK
  2. SINGULAIR [Concomitant]
     Indication: ASTHMA
  3. SINGULAIR [Concomitant]
     Indication: HYPERSENSITIVITY
     Dosage: UNK, AS NEEDED
  4. PANTOPRAZOLE [Suspect]
     Indication: GASTROOESOPHAGEAL REFLUX DISEASE
     Dosage: 40 MG, 1X/DAY
     Route: 048

REACTIONS (5)
  - CONSTIPATION [None]
  - NAUSEA [None]
  - PAIN [None]
  - PRODUCT SUBSTITUTION ISSUE [None]
  - ABDOMINAL PAIN [None]
